FAERS Safety Report 11389933 (Version 3)
Quarter: 2015Q4

REPORT INFORMATION
  Report Type: Spontaneous
  Country: US (occurrence: US)
  Receive Date: 20150818
  Receipt Date: 20151021
  Transmission Date: 20160304
  Serious: No
  Sender: FDA-Public Use
  Company Number: US-LEO PHARMA-236350

PATIENT
  Age: 69 Year
  Sex: Female

DRUGS (3)
  1. LEVOTHYROXINE. [Concomitant]
     Active Substance: LEVOTHYROXINE
     Indication: HYPOTHYROIDISM
  2. PICATO [Suspect]
     Active Substance: INGENOL MEBUTATE
     Dates: start: 20150409
  3. PICATO [Suspect]
     Active Substance: INGENOL MEBUTATE
     Indication: ACTINIC KERATOSIS
     Route: 061
     Dates: start: 20150809, end: 20150811

REACTIONS (10)
  - Application site reaction [Recovered/Resolved]
  - Inappropriate schedule of drug administration [Unknown]
  - Application site papules [Recovered/Resolved]
  - Application site erythema [Recovered/Resolved]
  - Application site dryness [Not Recovered/Not Resolved]
  - Application site scab [Recovered/Resolved]
  - Application site vesicles [Recovered/Resolved]
  - Multiple use of single-use product [Unknown]
  - Seborrhoea [Recovered/Resolved]
  - Application site swelling [Recovered/Resolved]

NARRATIVE: CASE EVENT DATE: 20150809
